FAERS Safety Report 10120757 (Version 1)
Quarter: 2014Q2

REPORT INFORMATION
  Report Type: Spontaneous
  Country: GB (occurrence: GB)
  Receive Date: 20140425
  Receipt Date: 20140425
  Transmission Date: 20141212
  Serious: Yes (Life-Threatening, Hospitalization, Other)
  Sender: FDA-Public Use
  Company Number: GB-BRISTOL-MYERS SQUIBB COMPANY-20647988

PATIENT
  Age: 84 Year
  Sex: Female
  Weight: 63 kg

DRUGS (18)
  1. METFORMIN HCL [Suspect]
  2. GLICLAZIDE [Suspect]
     Dosage: 80 MG 1 IN 1 DAY
     Route: 048
  3. CALCICHEW D3 [Suspect]
     Indication: OSTEOPOROSIS
     Route: 048
     Dates: end: 20140312
  4. RAMIPRIL [Suspect]
     Indication: ANGIOPATHY
     Route: 048
     Dates: end: 20140312
  5. TRIMETHOPRIM [Suspect]
     Indication: URINARY TRACT INFECTION
     Route: 048
     Dates: start: 20140306, end: 20140312
  6. ALENDRONIC ACID [Concomitant]
  7. ALVERINE CITRATE [Concomitant]
  8. ASPIRIN [Concomitant]
  9. BRINZOLAMIDE [Concomitant]
  10. FERROUS FUMARATE [Concomitant]
     Dates: start: 20140221
  11. GAVISCON ADVANCE [Concomitant]
  12. METOCLOPRAMIDE [Concomitant]
  13. PIOGLITAZONE HCL [Concomitant]
  14. QUININE SULFATE [Concomitant]
  15. SALBUTAMOL [Concomitant]
     Dosage: INHALATION USE
  16. SIMVASTATIN [Concomitant]
  17. PANADEINE CO [Concomitant]
  18. MACROGOL 3350 [Concomitant]

REACTIONS (6)
  - Renal failure acute [Recovered/Resolved]
  - Hypercalcaemia [Unknown]
  - Hyperkalaemia [Recovered/Resolved]
  - Hypoglycaemia [Recovered/Resolved]
  - Abdominal pain lower [Recovered/Resolved]
  - Nausea [Unknown]
